FAERS Safety Report 4715417-5 (Version None)
Quarter: 2005Q3

REPORT INFORMATION
  Report Type: 
  Country: None (occurrence: None)
  Receive Date: 20050715
  Receipt Date: 20050715
  Transmission Date: 20060218
  Serious: No
  Sender: FDA-Public Use
  Company Number: None

PATIENT
  Sex: Female
  Weight: 50.8029 kg

DRUGS (7)
  1. REMICADE [Suspect]
     Indication: RHEUMATOID ARTHRITIS
  2. METHOTREXATE [Concomitant]
  3. SYNTHROID [Concomitant]
  4. PREDNISONE [Concomitant]
  5. ADVAIR DISKUS 100/50 [Concomitant]
  6. FOSAMAX [Concomitant]
  7. FA [Concomitant]

REACTIONS (4)
  - B-CELL LYMPHOMA [None]
  - FEELING ABNORMAL [None]
  - PYREXIA [None]
  - UPPER RESPIRATORY TRACT INFECTION [None]
